FAERS Safety Report 21622828 (Version 1)
Quarter: 2022Q4

REPORT INFORMATION
  Report Type: Spontaneous
  Country: FR (occurrence: FR)
  Receive Date: 20221121
  Receipt Date: 20221121
  Transmission Date: 20230112
  Serious: Yes (Life-Threatening, Hospitalization)
  Sender: FDA-Public Use
  Company Number: None

PATIENT
  Age: 23 Year
  Sex: Female
  Weight: 47 kg

DRUGS (6)
  1. ACETAMINOPHEN [Suspect]
     Active Substance: ACETAMINOPHEN
     Indication: Intentional overdose
     Route: 065
     Dates: start: 20220117, end: 20220117
  2. QUETIAPINE [Concomitant]
     Active Substance: QUETIAPINE
     Indication: Psychotic disorder
     Dosage: 50 MG MORNING , AFTERNOON AND EVENING
     Route: 065
     Dates: end: 20220117
  3. TEMESTA 1 mg, scored tablet [Concomitant]
     Indication: Psychotic disorder
     Dosage: 0.5 MG NOON AND EVENING
     Route: 065
     Dates: end: 20220117
  4. DESMOPRESSIN ACETATE [Concomitant]
     Active Substance: DESMOPRESSIN ACETATE
     Indication: Diabetes insipidus
     Dosage: 15 UG MORNING AND EVENING
     Route: 065
     Dates: start: 2003, end: 20220117
  5. DESMOPRESSIN ACETATE [Concomitant]
     Active Substance: DESMOPRESSIN ACETATE
     Dosage: 15 UG MORNING AND EVENING
     Route: 065
     Dates: start: 20220126
  6. DUPHALAC [Concomitant]
     Active Substance: LACTULOSE
     Indication: Product used for unknown indication
     Route: 065
     Dates: end: 20220117

REACTIONS (2)
  - Hepatitis toxic [Recovered/Resolved]
  - Toxicity to various agents [Recovered/Resolved]

NARRATIVE: CASE EVENT DATE: 20220117
